FAERS Safety Report 10809411 (Version 1)
Quarter: 2015Q1

REPORT INFORMATION
  Report Type: Report from Study
  Country: US (occurrence: US)
  Receive Date: 20150217
  Receipt Date: 20150217
  Transmission Date: 20150721
  Serious: No
  Sender: FDA-Public Use
  Company Number: US-ABBVIE-14K-163-1222160-00

PATIENT
  Sex: Male

DRUGS (4)
  1. CREAM [Suspect]
     Active Substance: UNSPECIFIED INGREDIENT
     Indication: PSORIASIS
  2. DOVONEX [Suspect]
     Active Substance: CALCIPOTRIENE
     Indication: PSORIASIS
     Dosage: SPRAY
  3. HUMIRA [Suspect]
     Active Substance: ADALIMUMAB
     Indication: PSORIASIS
  4. SALVES [Suspect]
     Active Substance: UNSPECIFIED INGREDIENT
     Indication: PSORIASIS

REACTIONS (2)
  - Psoriasis [Not Recovered/Not Resolved]
  - Drug ineffective [Unknown]
